FAERS Safety Report 8050108-7 (Version None)
Quarter: 2012Q1

REPORT INFORMATION
  Report Type: 
  Country: None (occurrence: None)
  Receive Date: 20120117
  Receipt Date: 20120105
  Transmission Date: 20120608
  Serious: Yes (Hospitalization)
  Sender: FDA-Public Use
  Company Number: IT-MERCK-1201ITA00006

PATIENT
  Age: 77 Year
  Sex: Male

DRUGS (2)
  1. SINEMET [Suspect]
     Indication: PARKINSON'S DISEASE
     Route: 048
  2. SINEMET [Suspect]
     Route: 048

REACTIONS (3)
  - HALLUCINATION, VISUAL [None]
  - RESPIRATORY DISORDER [None]
  - CONFUSIONAL STATE [None]
